FAERS Safety Report 23589348 (Version 6)
Quarter: 2024Q2

REPORT INFORMATION
  Report Type: Spontaneous
  Country: US (occurrence: US)
  Receive Date: 20240304
  Receipt Date: 20240620
  Transmission Date: 20240716
  Serious: Yes (Other)
  Sender: FDA-Public Use
  Company Number: US-BRISTOL-MYERS SQUIBB COMPANY-2024-033938

PATIENT
  Age: 81 Year
  Sex: Male

DRUGS (4)
  1. LENALIDOMIDE [Suspect]
     Active Substance: LENALIDOMIDE
     Indication: Plasma cell myeloma
     Dosage: TAKE 1 CAPSULE BY MOUTH EVERY DAY FOR 14 DAYS ON THEN 7 DAYS OFF OF A 21 DAY CYCLE. DO NOT BREAK, CH
     Route: 048
     Dates: end: 20240228
  2. LENALIDOMIDE [Suspect]
     Active Substance: LENALIDOMIDE
     Dosage: TAKE 1 CAPSULE BY MOUTH EVERY DAY FOR 14 DAYS ON THEN 7 DAYS OFF OF A 21 DAY CYCLE. DO NOT BREAK, CH
     Route: 048
     Dates: end: 20240228
  3. LENALIDOMIDE [Suspect]
     Active Substance: LENALIDOMIDE
     Dosage: TAKE 1 CAPSULE BY MOUTH DAILY FOR 14 DAYS ON FOLLOWED BY 7 DAYS OFF OF A 21 DAY CYCLE. DONT^?BREAK,
     Route: 048
  4. LENALIDOMIDE [Suspect]
     Active Substance: LENALIDOMIDE
     Dosage: TAKE 1 CAPSULE BY MOUTH DAILY FOR 14 DAYS ON FOLLOWED BY 7 DAYS OFF OF A 21 DAY CYCLE. DONT^?BREAK,
     Route: 048

REACTIONS (8)
  - Cardiac disorder [Recovered/Resolved]
  - Off label use [Unknown]
  - Full blood count abnormal [Recovered/Resolved]
  - Dizziness [Not Recovered/Not Resolved]
  - Product supply issue [Unknown]
  - Therapy interrupted [Unknown]
  - Product dose omission issue [Unknown]
  - Laboratory test abnormal [Not Recovered/Not Resolved]
